FAERS Safety Report 7554087-8 (Version None)
Quarter: 2011Q2

REPORT INFORMATION
  Report Type: 
  Country: None (occurrence: None)
  Receive Date: 20110614
  Receipt Date: 20110614
  Transmission Date: 20111010
  Serious: No
  Sender: FDA-Public Use
  Company Number: None

PATIENT
  Sex: Female
  Weight: 119 kg

DRUGS (1)
  1. EFFIENT [Suspect]
     Dosage: 30MG X1  PO; 10MG QDAY -REC'D ONLY 1 PO
     Route: 048
     Dates: start: 20101229, end: 20101230

REACTIONS (5)
  - RENAL FAILURE ACUTE [None]
  - RASH MORBILLIFORM [None]
  - RASH PRURITIC [None]
  - BLISTER [None]
  - DERMATITIS CONTACT [None]
